FAERS Safety Report 20237089 (Version 1)
Quarter: 2021Q4

REPORT INFORMATION
  Report Type: Spontaneous
  Country: US (occurrence: US)
  Receive Date: 20211228
  Receipt Date: 20211228
  Transmission Date: 20220303
  Serious: Yes (Other)
  Sender: FDA-Public Use
  Company Number: US-INCYTE CORPORATION-2021IN012062

PATIENT

DRUGS (4)
  1. JAKAFI [Suspect]
     Active Substance: RUXOLITINIB
     Indication: Acute graft versus host disease
     Dosage: 2.5 MILLIGRAM, BID
     Route: 065
     Dates: start: 202010, end: 202011
  2. JAKAFI [Suspect]
     Active Substance: RUXOLITINIB
     Indication: Chronic graft versus host disease
  3. TACROLIMUS [Concomitant]
     Active Substance: TACROLIMUS
     Indication: Product used for unknown indication
     Route: 065
  4. PREDNISOLONE [Concomitant]
     Active Substance: PREDNISOLONE
     Indication: Product used for unknown indication
     Route: 065

REACTIONS (4)
  - Graft versus host disease [Unknown]
  - Condition aggravated [Unknown]
  - Wrong technique in product usage process [Unknown]
  - Off label use [Unknown]
